FAERS Safety Report 10404135 (Version 1)
Quarter: 2014Q1

REPORT INFORMATION
  Report Type: Spontaneous
  Country: US (occurrence: None)
  Receive Date: 20131125
  Receipt Date: 20131125
  Transmission Date: 20141002
  Serious: Yes (Hospitalization, Other)
  Sender: FDA-Public Use
  Company Number: E2B_00000395

PATIENT
  Age: 45 Year
  Sex: Female
  Weight: 108.86 kg

DRUGS (2)
  1. LISINOPRIL AND HYDROCHLOROTHIAZIDE TABLETS USP 20 MG/12.5 MG [Suspect]
     Indication: HYPERTENSION
     Route: 048
     Dates: end: 20120829
  2. LEVOTHYROXINE [Concomitant]

REACTIONS (4)
  - Swollen tongue [None]
  - Dry mouth [None]
  - Pharyngeal oedema [None]
  - Epiglottic oedema [None]
